FAERS Safety Report 22140398 (Version 1)
Quarter: 2023Q1

REPORT INFORMATION
  Report Type: Spontaneous
  Country: US (occurrence: None)
  Receive Date: 20230324
  Receipt Date: 20230324
  Transmission Date: 20230418
  Serious: Yes (Death)
  Sender: FDA-Public Use
  Company Number: None

PATIENT
  Age: 64 Year
  Sex: Female
  Weight: 131.1 kg

DRUGS (1)
  1. MITOXANTRONE [Suspect]
     Active Substance: MITOXANTRONE HYDROCHLORIDE
     Indication: Progressive multiple sclerosis
     Dosage: OTHER FREQUENCY : EVERY 3 MONTHS;?
     Dates: start: 20220901, end: 20230321

REACTIONS (6)
  - Supraventricular tachycardia [None]
  - Ventricular tachycardia [None]
  - Ventricular flutter [None]
  - Vomiting [None]
  - Bradycardia [None]
  - Cardiac arrest [None]

NARRATIVE: CASE EVENT DATE: 20230322
